FAERS Safety Report 17867830 (Version 4)
Quarter: 2020Q3

REPORT INFORMATION
  Report Type: Report from Study
  Country: US (occurrence: US)
  Receive Date: 20200605
  Receipt Date: 20200722
  Transmission Date: 20201103
  Serious: Yes (Hospitalization, Other)
  Sender: FDA-Public Use
  Company Number: NVSC2020US157394

PATIENT
  Age: 58 Year
  Sex: Male
  Weight: 90 kg

DRUGS (1)
  1. COSENTYX [Suspect]
     Active Substance: SECUKINUMAB
     Indication: PSORIASIS
     Dosage: 300 MG, Q4W
     Route: 030
     Dates: start: 20171220, end: 201902

REACTIONS (6)
  - Malaise [Unknown]
  - Cerebrovascular accident [Recovered/Resolved with Sequelae]
  - Endocarditis [Unknown]
  - Q fever [Unknown]
  - Chlamydia test positive [Unknown]
  - Incorrect route of product administration [Unknown]

NARRATIVE: CASE EVENT DATE: 201902
